FAERS Safety Report 8617382-7 (Version None)
Quarter: 2012Q3

REPORT INFORMATION
  Report Type: 
  Country: None (occurrence: None)
  Receive Date: 20120823
  Receipt Date: 20120810
  Transmission Date: 20120928
  Serious: Yes (Hospitalization)
  Sender: FDA-Public Use
  Company Number: IT-MYLANLABS-2012S1016685

PATIENT
  Age: 50 Year
  Sex: Male

DRUGS (2)
  1. KETOPROFEN [Suspect]
     Indication: NECK PAIN
     Dosage: 200 MG/DAY FOR THE LAST 3 DAYS
     Route: 065
  2. MINIRIN [Interacting]
     Indication: DIABETES INSIPIDUS
     Dosage: 60 MCG 4 TABLETS A DAY
     Route: 065

REACTIONS (4)
  - GRAND MAL CONVULSION [None]
  - DRUG INTERACTION [None]
  - COMA [None]
  - HYPONATRAEMIA [None]
